FAERS Safety Report 25547168 (Version 1)
Quarter: 2025Q3

REPORT INFORMATION
  Report Type: Other
  Country: EU (occurrence: EU)
  Receive Date: 20250714
  Receipt Date: 20250714
  Transmission Date: 20251021
  Serious: Yes (Other)
  Sender: LUPIN
  Company Number: EU-EMB-M202402567-1

PATIENT
  Sex: Female
  Weight: 90 kg

DRUGS (6)
  1. QUETIAPINE [Suspect]
     Active Substance: QUETIAPINE
     Indication: Psychotic disorder
     Dosage: 300 MG, QD (IN THE EVENING 150 MG RETARD PLUS 50 MG UNRETARDED AND AT NIGHT 100 MG UNRETARDED )
     Dates: start: 202401, end: 202410
  2. ASPIRIN [Concomitant]
     Active Substance: ASPIRIN
     Indication: Prophylaxis
     Dosage: 75 MILLIGRAM (UNKNOWN WHEN STARTED, UNTIL GW 37)
  3. NYSTATIN [Concomitant]
     Active Substance: NYSTATIN
     Indication: Tinea versicolour
     Dosage: UNK, BID
  4. DINOPROSTONE [Concomitant]
     Active Substance: DINOPROSTONE
     Indication: Labour induction
  5. MICONAZOLE [Concomitant]
     Active Substance: MICONAZOLE
     Indication: Tinea versicolour
     Dosage: BID
     Dates: start: 202403, end: 202403
  6. MICONAZOLE [Concomitant]
     Active Substance: MICONAZOLE
     Dates: start: 202404, end: 202404

REACTIONS (2)
  - Gestational diabetes [Recovered/Resolved]
  - Exposure during pregnancy [Unknown]
